FAERS Safety Report 4562151-0 (Version None)
Quarter: 2005Q1

REPORT INFORMATION
  Report Type: 
  Country: None (occurrence: None)
  Receive Date: 20050124
  Receipt Date: 20050111
  Transmission Date: 20050727
  Serious: Yes (Hospitalization, Other)
  Sender: FDA-Public Use
  Company Number: 2005009186

PATIENT
  Age: 58 Year
  Sex: Male

DRUGS (7)
  1. IRINOTECAN HCL [Suspect]
     Indication: COLON CANCER
     Dosage: 400 MG (SQ. METER), INTRAVENOUS
     Route: 042
     Dates: start: 20041018, end: 20041018
  2. CETUXIMAB (CETUXIMAB) [Suspect]
     Indication: COLON CANCER
     Dosage: 400 MG/M*2, INTRAVENOUS
     Route: 042
     Dates: start: 20041018, end: 20041018
  3. FLUOROURACIL [Suspect]
     Indication: COLON CANCER
     Dosage: 400 MG/M*2, INTRAVENOUS
     Route: 042
     Dates: start: 20041018, end: 20041018
  4. LEUCOVORIN CALCIUM [Suspect]
     Indication: COLON CANCER
     Dosage: 400 MG/M*2, INTRAVENOUS
     Route: 042
     Dates: start: 20041018, end: 20041018
  5. WARFARIN SODIUM [Suspect]
     Indication: ILL-DEFINED DISORDER
  6. LORAZEPAM DOROM (LORAZEPAM) [Suspect]
     Indication: ILL-DEFINED DISORDER
  7. MS CONTIN [Suspect]
     Indication: ILL-DEFINED DISORDER

REACTIONS (9)
  - ACIDOSIS [None]
  - BLOOD BICARBONATE DECREASED [None]
  - CONFUSIONAL STATE [None]
  - DIARRHOEA [None]
  - DIZZINESS [None]
  - GASTROINTESTINAL INFECTION [None]
  - INTERNATIONAL NORMALISED RATIO INCREASED [None]
  - NAUSEA [None]
  - VOMITING [None]
